FAERS Safety Report 7530629-3 (Version None)
Quarter: 2011Q2

REPORT INFORMATION
  Report Type: 
  Country: None (occurrence: None)
  Receive Date: 20110607
  Receipt Date: 20110530
  Transmission Date: 20111010
  Serious: Yes (Hospitalization)
  Sender: FDA-Public Use
  Company Number: CH-TEVA-284118ISR

PATIENT
  Age: 67 Year
  Sex: Male

DRUGS (8)
  1. AMIODARONE HCL [Interacting]
     Indication: ATRIAL FIBRILLATION
     Route: 042
     Dates: end: 20100720
  2. IBUTILIDE [Concomitant]
  3. ATORVASTATIN [Interacting]
     Dosage: 80 MILLIGRAM;
  4. ALLOPURINOL [Concomitant]
  5. ATORVASTATIN [Interacting]
     Dosage: 40 MILLIGRAM;
     Route: 048
  6. FLUCONAZOLE [Interacting]
     Indication: CANDIDA OSTEOMYELITIS
     Dosage: 400 MILLIGRAM;
     Route: 042
     Dates: start: 20100715, end: 20100720
  7. DOBUTAMINE HYDROCHLORIDE [Concomitant]
  8. ALLOPURINOL [Suspect]
     Dosage: 100 MILLIGRAM;

REACTIONS (16)
  - RHABDOMYOLYSIS [None]
  - MYOPATHY [None]
  - MYOGLOBINURIA [None]
  - HYPERPHOSPHATAEMIA [None]
  - DELIRIUM [None]
  - COMA [None]
  - CANDIDA OSTEOMYELITIS [None]
  - HYPOTHYROIDISM [None]
  - NEPHROPATHY [None]
  - PYREXIA [None]
  - SYSTEMIC INFLAMMATORY RESPONSE SYNDROME [None]
  - PULMONARY OEDEMA [None]
  - HYPOCALCAEMIA [None]
  - ATRIAL FIBRILLATION [None]
  - GOUT [None]
  - TACHYPNOEA [None]
